FAERS Safety Report 5513895-5 (Version None)
Quarter: 2007Q4

REPORT INFORMATION
  Report Type: 
  Country: None (occurrence: None)
  Receive Date: 20071106
  Receipt Date: 20060921
  Transmission Date: 20080405
  Serious: Yes (Hospitalization, Other)
  Sender: FDA-Public Use
  Company Number: US200609005180

PATIENT
  Age: 45 Year
  Sex: Female

DRUGS (3)
  1. PROZAC [Suspect]
     Indication: MAJOR DEPRESSION
     Dosage: 30 MG, ORAL
     Route: 048
     Dates: start: 19870101
  2. SYNTHROID [Concomitant]
  3. PREVACID [Concomitant]

REACTIONS (1)
  - SUICIDE ATTEMPT [None]
